FAERS Safety Report 17636218 (Version 2)
Quarter: 2020Q2

REPORT INFORMATION
  Report Type: Spontaneous
  Country: CA (occurrence: CA)
  Receive Date: 20200407
  Receipt Date: 20200610
  Transmission Date: 20200713
  Serious: Yes (Other)
  Sender: FDA-Public Use
  Company Number: CA-SAMSUNG BIOEPIS-SB-2019-17503

PATIENT
  Age: 74 Year
  Sex: Female

DRUGS (4)
  1. BETAMETHASONE DIPROPIONATE/CALCIPO TRIOL [Concomitant]
     Indication: PSORIASIS
     Dosage: UNKNOWN
     Route: 061
  2. ARAVA [Concomitant]
     Active Substance: LEFLUNOMIDE
     Indication: PSORIATIC ARTHROPATHY
     Dosage: UNKNOWN
     Route: 065
  3. GRAVOL [Concomitant]
     Active Substance: DIMENHYDRINATE
     Indication: VERTIGO
     Dosage: UNKNOWN
     Route: 065
  4. INFLIXIMAB [Suspect]
     Active Substance: INFLIXIMAB
     Indication: PSORIASIS
     Route: 042

REACTIONS (11)
  - Blood cholesterol increased [Unknown]
  - Gastrooesophageal reflux disease [Unknown]
  - Drug ineffective [Recovering/Resolving]
  - Arthralgia [Unknown]
  - Rheumatoid arthritis [Unknown]
  - Psoriatic arthropathy [Unknown]
  - Off label use [Unknown]
  - Blood pressure fluctuation [Unknown]
  - Product use issue [Recovering/Resolving]
  - Condition aggravated [Unknown]
  - Intentional product use issue [Unknown]
